FAERS Safety Report 22242351 (Version 1)
Quarter: 2023Q2

REPORT INFORMATION
  Report Type: Spontaneous
  Country: HU (occurrence: HU)
  Receive Date: 20230422
  Receipt Date: 20230422
  Transmission Date: 20230722
  Serious: Yes (Other)
  Sender: FDA-Public Use
  Company Number: None

PATIENT
  Sex: Male

DRUGS (2)
  1. CAPECITABINE [Suspect]
     Active Substance: CAPECITABINE
     Indication: Colon cancer metastatic
     Dosage: STRENGTH: 500 MG
  2. TEMOZOLOMIDE [Concomitant]
     Active Substance: TEMOZOLOMIDE
     Indication: Colon cancer metastatic
     Dosage: STRENGTH: 100 MG

REACTIONS (2)
  - Dyschezia [Unknown]
  - Haematochezia [Unknown]

NARRATIVE: CASE EVENT DATE: 20210101
